FAERS Safety Report 25880448 (Version 1)
Quarter: 2025Q4

REPORT INFORMATION
  Report Type: Spontaneous
  Country: US (occurrence: US)
  Receive Date: 20251004
  Receipt Date: 20251004
  Transmission Date: 20260118
  Serious: Yes (Other)
  Sender: Kenvue
  Company Number: US-KENVUE-20251000134

PATIENT

DRUGS (1)
  1. TYLENOL REGULAR STRENGTH [Suspect]
     Active Substance: ACETAMINOPHEN
     Indication: Product used for unknown indication
     Dosage: UNK
     Route: 064
     Dates: start: 201711, end: 201808

REACTIONS (3)
  - Autism spectrum disorder [Unknown]
  - Foetal exposure during pregnancy [Unknown]
  - Attention deficit hyperactivity disorder [Unknown]
